FAERS Safety Report 5397447-6 (Version None)
Quarter: 2007Q3

REPORT INFORMATION
  Report Type: 
  Country: None (occurrence: None)
  Receive Date: 20070723
  Receipt Date: 20070723
  Transmission Date: 20080115
  Serious: Yes (Other)
  Sender: FDA-Public Use
  Company Number: None

PATIENT
  Sex: Female
  Weight: 71.2147 kg

DRUGS (1)
  1. PARAGUARD T380A IUD [Suspect]
     Dates: start: 20061229

REACTIONS (1)
  - PREGNANCY WITH CONTRACEPTIVE DEVICE [None]
